FAERS Safety Report 4333635-5 (Version None)
Quarter: 2004Q2

REPORT INFORMATION
  Report Type: 
  Country: None (occurrence: None)
  Receive Date: 20040402
  Receipt Date: 20040324
  Transmission Date: 20050107
  Serious: Yes (Other)
  Sender: FDA-Public Use
  Company Number: US-JNJFOC-20040305578

PATIENT
  Age: 70 Year
  Sex: Male
  Weight: 78.9259 kg

DRUGS (8)
  1. GALANTAMINE (GALANTAMINE) UNSPECIFIED [Suspect]
     Indication: TARDIVE DYSKINESIA
     Dates: start: 20040220, end: 20040316
  2. PLACEBO (PLACEBO) UNSPECIFIED [Suspect]
     Indication: TARDIVE DYSKINESIA
     Dates: start: 20040220, end: 20040316
  3. ASPIRIN [Suspect]
     Indication: DRUG USE FOR UNKNOWN INDICATION
     Dosage: 81 MG, 1 IN 1 DAY, ORAL
     Route: 048
  4. HALOPERIDOL DECONOATE (HALOPERIDOL) INJECTION [Concomitant]
  5. HALOPERIDOL [Concomitant]
  6. PSYLLIUM (PSYLLIUM) [Concomitant]
  7. DOCUSATE (DOCUSATE) [Concomitant]
  8. HYDROCHLOROTHIAZIDE [Concomitant]

REACTIONS (3)
  - ACCIDENTAL OVERDOSE [None]
  - CONDITION AGGRAVATED [None]
  - TREMOR [None]
